FAERS Safety Report 5551675-5 (Version None)
Quarter: 2007Q4

REPORT INFORMATION
  Report Type: 
  Country: None (occurrence: None)
  Receive Date: 20071129
  Receipt Date: 20070703
  Transmission Date: 20080405
  Serious: Yes (Hospitalization, Other)
  Sender: FDA-Public Use
  Company Number: US200606005565

PATIENT
  Age: 66 Year
  Sex: Female
  Weight: 126.1 kg

DRUGS (4)
  1. ZYPREXA [Suspect]
     Dosage: 2.5 MG, ORAL, 10 MG, ORAL
     Route: 048
     Dates: end: 20051001
  2. ZYPREXA [Suspect]
     Dosage: 2.5 MG, ORAL, 10 MG, ORAL
     Route: 048
     Dates: start: 20020701
  3. RISPERDAL [Concomitant]
  4. ZOLOFT [Concomitant]

REACTIONS (6)
  - DIABETES MELLITUS [None]
  - DIABETIC COMA [None]
  - DIABETIC KETOACIDOSIS [None]
  - HYPERGLYCAEMIA [None]
  - LOSS OF CONSCIOUSNESS [None]
  - PANCREATITIS [None]
